FAERS Safety Report 7319487-X (Version None)
Quarter: 2011Q1

REPORT INFORMATION
  Report Type: 
  Country: None (occurrence: None)
  Receive Date: 20110214
  Receipt Date: 20110203
  Transmission Date: 20110831
  Serious: Yes (Other)
  Sender: FDA-Public Use
  Company Number: ACO_21272_2010

PATIENT
  Age: 40 Year
  Sex: Female
  Weight: 77.1 kg

DRUGS (7)
  1. BACLOFEN [Concomitant]
  2. DITROPAN [Concomitant]
  3. REBIF [Suspect]
     Indication: PRODUCT USED FOR UNKNOWN INDICATION
     Dosage: 44 MCG,3 IN 1 WEEK, SUBCUTANEOUS
     Route: 058
     Dates: start: 20090323, end: 20101231
  4. ALEVE [Concomitant]
  5. AMPYRA [Suspect]
     Indication: GAIT DISTURBANCE
     Dosage: 10 MG, QD, ORAL
     Route: 048
     Dates: start: 20101001, end: 20101231
  6. LEXAPRO [Concomitant]
  7. VITAMIN B-12 [Concomitant]

REACTIONS (13)
  - HEPATIC ENZYME INCREASED [None]
  - UNRESPONSIVE TO STIMULI [None]
  - CONFUSIONAL STATE [None]
  - INAPPROPRIATE SCHEDULE OF DRUG ADMINISTRATION [None]
  - HEAD INJURY [None]
  - DRUG INEFFECTIVE [None]
  - ANGER [None]
  - ASPARTATE AMINOTRANSFERASE INCREASED [None]
  - ALANINE AMINOTRANSFERASE INCREASED [None]
  - CONVULSION [None]
  - IRRITABILITY [None]
  - PARAESTHESIA [None]
  - COMPULSIVE LIP BITING [None]
